FAERS Safety Report 5624355-5 (Version None)
Quarter: 2008Q1

REPORT INFORMATION
  Report Type: 
  Country: None (occurrence: None)
  Receive Date: 20080211
  Receipt Date: 20080211
  Transmission Date: 20080703
  Serious: Yes (Hospitalization)
  Sender: FDA-Public Use
  Company Number: None

PATIENT
  Age: 41 Year
  Sex: Female
  Weight: 74.8435 kg

DRUGS (1)
  1. TYGACIL [Suspect]
     Indication: APPENDICITIS PERFORATED
     Dosage: 50MG EVERY 12 HOURS IV
     Route: 042

REACTIONS (1)
  - ANAPHYLACTIC REACTION [None]
